FAERS Safety Report 8103962-4 (Version None)
Quarter: 2012Q1

REPORT INFORMATION
  Report Type: 
  Country: None (occurrence: None)
  Receive Date: 20120201
  Receipt Date: 20120128
  Transmission Date: 20120608
  Serious: Yes (Death, Hospitalization, Other)
  Sender: FDA-Public Use
  Company Number: PHHY2012DO007823

PATIENT
  Age: 96 Year
  Sex: Male

DRUGS (4)
  1. PLAVIX [Concomitant]
  2. TAMSULOSIN HCL [Concomitant]
  3. CANDESARTAN CILEXETIL [Concomitant]
  4. ZOLEDRONOC ACID [Suspect]
     Indication: OSTEOPOROSIS
     Dosage: 5 MG, UNK
     Route: 042
     Dates: start: 20100101

REACTIONS (5)
  - DEATH [None]
  - URINE OUTPUT DECREASED [None]
  - FALL [None]
  - RENAL IMPAIRMENT [None]
  - HIP FRACTURE [None]
